FAERS Safety Report 7395419-3 (Version None)
Quarter: 2011Q2

REPORT INFORMATION
  Report Type: 
  Country: None (occurrence: None)
  Receive Date: 20110405
  Receipt Date: 20110325
  Transmission Date: 20111010
  Serious: Yes (Life-Threatening)
  Sender: FDA-Public Use
  Company Number: US-BAYER-2011-028213

PATIENT
  Sex: Female

DRUGS (1)
  1. OCELLA [Suspect]

REACTIONS (8)
  - GALLBLADDER NON-FUNCTIONING [None]
  - ANXIETY [None]
  - FATIGUE [None]
  - ASTHENIA [None]
  - PAIN [None]
  - GENERAL PHYSICAL HEALTH DETERIORATION [None]
  - INJURY [None]
  - ANHEDONIA [None]
